FAERS Safety Report 5052922-9 (Version None)
Quarter: 2006Q3

REPORT INFORMATION
  Report Type: 
  Country: None (occurrence: None)
  Receive Date: 20060717
  Receipt Date: 20060621
  Transmission Date: 20061208
  Serious: Yes (Death)
  Sender: FDA-Public Use
  Company Number: JP-AVENTIS-200611916JP

PATIENT
  Age: 58 Year
  Sex: Female
  Weight: 57 kg

DRUGS (3)
  1. TAXOTERE [Suspect]
     Indication: LIP AND/OR ORAL CAVITY CANCER STAGE III
     Route: 041
     Dates: start: 20060605, end: 20060605
  2. BRIPLATIN [Concomitant]
     Indication: LIP AND/OR ORAL CAVITY CANCER STAGE III
     Route: 041
     Dates: start: 20060605, end: 20060605
  3. ANTINEOPLASTIC AND IMMUNOSUPPRESSIVE AGENTS [Concomitant]
     Indication: LIP AND/OR ORAL CAVITY CANCER STAGE III
     Route: 048
     Dates: start: 20060117, end: 20060522

REACTIONS (9)
  - CHEST PAIN [None]
  - DYSPNOEA [None]
  - HEPATIC FUNCTION ABNORMAL [None]
  - LUNG DISORDER [None]
  - MULTI-ORGAN FAILURE [None]
  - NEUTROPHIL COUNT DECREASED [None]
  - PLEURISY [None]
  - RENAL IMPAIRMENT [None]
  - WHITE BLOOD CELL COUNT DECREASED [None]
